FAERS Safety Report 17435531 (Version 2)
Quarter: 2021Q3

REPORT INFORMATION
  Report Type: Spontaneous
  Country: US (occurrence: US)
  Receive Date: 20200219
  Receipt Date: 20210901
  Transmission Date: 20211014
  Serious: No
  Sender: FDA-Public Use
  Company Number: US-VERTEX PHARMACEUTICALS-2018-000627

PATIENT
  Sex: Female
  Weight: 67 kg

DRUGS (3)
  1. KALYDECO [Suspect]
     Active Substance: IVACAFTOR
     Dosage: REDUCED DOSE (TWICE A WEEK)
     Route: 048
  2. ITRACONAZOLE. [Concomitant]
     Active Substance: ITRACONAZOLE
  3. KALYDECO [Suspect]
     Active Substance: IVACAFTOR
     Indication: CYSTIC FIBROSIS
     Dosage: 150 MG, FREQ UNSPECIFIED
     Route: 048
     Dates: start: 20170707

REACTIONS (3)
  - Cortisol decreased [Unknown]
  - Vertigo [Unknown]
  - Migraine [Not Recovered/Not Resolved]
